FAERS Safety Report 4874239-5 (Version None)
Quarter: 2006Q1

REPORT INFORMATION
  Report Type: 
  Country: None (occurrence: None)
  Receive Date: 20060106
  Receipt Date: 20051005
  Transmission Date: 20060701
  Serious: Yes (Hospitalization)
  Sender: FDA-Public Use
  Company Number: US-MERCK-0510USA04389

PATIENT
  Sex: Male
  Weight: 102 kg

DRUGS (2)
  1. VIOXX [Suspect]
     Indication: ARTHRALGIA
     Route: 048
     Dates: start: 20000401, end: 20010701
  2. TYLENOL [Concomitant]
     Route: 065

REACTIONS (4)
  - BACK DISORDER [None]
  - GASTRIC DISORDER [None]
  - MYOCARDIAL INFARCTION [None]
  - PARATHYROID DISORDER [None]
